FAERS Safety Report 8432550-5 (Version None)
Quarter: 2012Q2

REPORT INFORMATION
  Report Type: 
  Country: None (occurrence: None)
  Receive Date: 20120606
  Receipt Date: 20120525
  Transmission Date: 20120825
  Serious: Yes (Hospitalization, Other)
  Sender: FDA-Public Use
  Company Number: AUR-APL-2012-02402

PATIENT
  Age: 56 Year
  Sex: Male
  Weight: 101.6 kg

DRUGS (7)
  1. AMOXICILLIN [Concomitant]
  2. SIMVASTATIN [Suspect]
     Indication: HYPERCHOLESTEROLAEMIA
     Dosage: (40 MG), ORAL
     Route: 048
     Dates: start: 20120301, end: 20120511
  3. CYANOCOBALAMIN [Concomitant]
  4. FOLIC ACID [Concomitant]
  5. OMEPRAZOLE [Concomitant]
  6. ALBUTEROL SULFATE [Concomitant]
  7. PREDNISOLONE [Suspect]
     Indication: CHRONIC OBSTRUCTIVE PULMONARY DISEASE
     Dosage: (35 MG),ORAL
     Route: 048
     Dates: start: 20120509, end: 20120511

REACTIONS (15)
  - RENAL FAILURE ACUTE [None]
  - BLOOD PRESSURE INCREASED [None]
  - PAIN [None]
  - BLOOD BICARBONATE DECREASED [None]
  - BLOOD ALBUMIN DECREASED [None]
  - HAEMODIALYSIS [None]
  - TACHYCARDIA [None]
  - PLATELET COUNT DECREASED [None]
  - DELIRIUM TREMENS [None]
  - HYPERKALAEMIA [None]
  - WHITE BLOOD CELL COUNT INCREASED [None]
  - RHABDOMYOLYSIS [None]
  - CHRONIC OBSTRUCTIVE PULMONARY DISEASE [None]
  - CONDITION AGGRAVATED [None]
  - AMYLASE INCREASED [None]
